FAERS Safety Report 7045518-0 (Version None)
Quarter: 2010Q4

REPORT INFORMATION
  Report Type: 
  Country: None (occurrence: None)
  Receive Date: 20101014
  Receipt Date: 20101005
  Transmission Date: 20110411
  Serious: Yes (Other)
  Sender: FDA-Public Use
  Company Number: US-ASTRAZENECA-2009UW13890

PATIENT
  Age: 60 Year
  Sex: Female

DRUGS (6)
  1. ARIMIDEX [Suspect]
     Indication: BREAST CANCER
     Route: 048
     Dates: start: 20060101, end: 20100901
  2. FISH OIL [Concomitant]
  3. BENOCAR [Concomitant]
  4. VIT D [Concomitant]
  5. ACTONEL [Concomitant]
  6. JUNEVIA [Concomitant]

REACTIONS (6)
  - CARPAL TUNNEL SYNDROME [None]
  - COLON CANCER [None]
  - HYPERTRICHOSIS [None]
  - MALIGNANT MELANOMA [None]
  - METASTASES TO LUNG [None]
  - OSTEOARTHRITIS [None]
